FAERS Safety Report 8361805-8 (Version None)
Quarter: 2012Q2

REPORT INFORMATION
  Report Type: 
  Country: None (occurrence: None)
  Receive Date: 20120515
  Receipt Date: 20120507
  Transmission Date: 20120825
  Serious: Yes (Hospitalization)
  Sender: FDA-Public Use
  Company Number: BR-GLAXOSMITHKLINE-A0977590A

PATIENT
  Sex: Female

DRUGS (2)
  1. PREDNISONE [Suspect]
     Indication: PRODUCT USED FOR UNKNOWN INDICATION
     Dosage: 1TAB PER DAY
     Dates: start: 20120101
  2. FLUTICASONE PROPIONATE/SALMETEROL [Suspect]
     Indication: DYSPNOEA
     Dosage: 1PUFF TWICE PER DAY
     Route: 055
     Dates: start: 20100501

REACTIONS (1)
  - MYOCARDIAL INFARCTION [None]
